FAERS Safety Report 6075073-3 (Version None)
Quarter: 2009Q1

REPORT INFORMATION
  Report Type: 
  Country: None (occurrence: None)
  Receive Date: 20090212
  Receipt Date: 20090202
  Transmission Date: 20090719
  Serious: Yes (Life-Threatening, Hospitalization)
  Sender: FDA-Public Use
  Company Number: ES-JNJFOC-20080801937

PATIENT
  Sex: Male
  Weight: 85.8 kg

DRUGS (6)
  1. TMC125 [Suspect]
     Route: 048
  2. TMC125 [Suspect]
     Indication: HIV INFECTION
     Route: 048
  3. PREZISTA [Suspect]
     Indication: HIV INFECTION
     Route: 048
  4. RALTEGRAVIR [Suspect]
     Indication: HIV INFECTION
     Route: 048
  5. RITONAVIR [Suspect]
     Indication: HIV INFECTION
     Route: 048
  6. DAFLON [Concomitant]
     Indication: HAEMORRHOIDS

REACTIONS (1)
  - HEPATIC FAILURE [None]
